FAERS Safety Report 5966086-8 (Version None)
Quarter: 2008Q4

REPORT INFORMATION
  Report Type: 
  Country: None (occurrence: None)
  Receive Date: 20081119
  Receipt Date: 20080728
  Transmission Date: 20090506
  Serious: No
  Sender: FDA-Public Use
  Company Number: WAES 0807USA05330

PATIENT
  Age: 60 Year
  Sex: Female

DRUGS (7)
  1. JANUVIA [Suspect]
     Indication: TYPE 2 DIABETES MELLITUS
     Dosage: 100 MG/DAILY/PO
     Route: 048
     Dates: start: 20080101
  2. FERROUSSO4 [Suspect]
  3. FERRIC SULFATE [Suspect]
  4. COREG [Concomitant]
  5. DIOVAN [Concomitant]
  6. GLIMEPIRIDE [Concomitant]
  7. RAMIPRIL [Concomitant]

REACTIONS (1)
  - BLOOD GLUCOSE INCREASED [None]
